FAERS Safety Report 21135302 (Version 2)
Quarter: 2022Q3

REPORT INFORMATION
  Report Type: Spontaneous
  Country: US (occurrence: US)
  Receive Date: 20220727
  Receipt Date: 20220809
  Transmission Date: 20221027
  Serious: No
  Sender: FDA-Public Use
  Company Number: US-ELI_LILLY_AND_COMPANY-US202207009395

PATIENT
  Sex: Female
  Weight: 66.67 kg

DRUGS (4)
  1. TADALAFIL [Suspect]
     Active Substance: TADALAFIL
     Indication: Product used for unknown indication
     Dosage: UNK UNK, UNKNOWN
     Route: 065
  2. TYVASO [Suspect]
     Active Substance: TREPROSTINIL
     Indication: Pulmonary arterial hypertension
     Dosage: 7 BREATHS, QID
     Route: 055
     Dates: start: 20220707
  3. TYVASO [Suspect]
     Active Substance: TREPROSTINIL
     Dosage: 6 BREATHS, QID
     Route: 055
  4. XARELTO [Concomitant]
     Active Substance: RIVAROXABAN
     Indication: Product used for unknown indication

REACTIONS (8)
  - Feeling abnormal [Unknown]
  - Sinus pain [Unknown]
  - Decreased appetite [Unknown]
  - Weight decreased [Unknown]
  - Sinusitis [Unknown]
  - Fatigue [Unknown]
  - Head discomfort [Unknown]
  - Nausea [Unknown]
